FAERS Safety Report 8217369 (Version 3)
Quarter: 2012Q4

REPORT INFORMATION
  Report Type: 
  Country: US (occurrence: US)
  Receive Date: 20111101
  Receipt Date: 20120924
  Transmission Date: 20130627
  Serious: Yes (Life-Threatening, Hospitalization)
  Sender: FDA-Public Use
  Company Number: US-BAYER-2011-102904

PATIENT
  Age: 32 Year
  Sex: Female
  Weight: 74.83 kg

DRUGS (13)
  1. YAZ [Suspect]
     Indication: CONTRACEPTION
     Dosage: UNK
     Dates: start: 20090714, end: 20091027
  2. YAZ [Suspect]
     Indication: ACNE
  3. YAZ [Suspect]
     Indication: PREMENSTRUAL SYNDROME
  4. YASMIN [Suspect]
     Indication: CONTRACEPTION
     Dosage: UNK
     Dates: start: 200410, end: 200502
  5. YASMIN [Suspect]
     Indication: ACNE
  6. YASMIN [Suspect]
     Indication: PREMENSTRUAL SYNDROME
  7. ORTHO-TRI-CYCLEN LO [Concomitant]
     Dosage: UNK
     Dates: start: 2003, end: 2009
  8. TRINESSA [Concomitant]
     Dosage: UNK
     Dates: start: 2003, end: 2009
  9. MIDRIN [Concomitant]
     Dosage: UNK
     Dates: start: 200909
  10. IMITREX [Concomitant]
     Dosage: UNK
     Dates: start: 200909
  11. ASPIRIN [Concomitant]
  12. NITROGLYCERINE [Concomitant]
  13. MOTRIN [Concomitant]

REACTIONS (10)
  - Pulmonary embolism [Recovered/Resolved]
  - Deep vein thrombosis [None]
  - Pain [Recovered/Resolved]
  - Injury [Recovered/Resolved]
  - Fear [None]
  - Emotional distress [None]
  - Anhedonia [None]
  - Dyspnoea [Recovered/Resolved]
  - Palpitations [Recovered/Resolved]
  - Anxiety [None]
